FAERS Safety Report 16353986 (Version 1)
Quarter: 2019Q2

REPORT INFORMATION
  Report Type: Spontaneous
  Country: DE (occurrence: DE)
  Receive Date: 20190524
  Receipt Date: 20190524
  Transmission Date: 20190711
  Serious: Yes (Hospitalization, Other)
  Sender: FDA-Public Use
  Company Number: DE-PFIZER INC-2019148870

PATIENT
  Age: 41 Year
  Sex: Female
  Weight: 54 kg

DRUGS (3)
  1. XELJANZ [Suspect]
     Active Substance: TOFACITINIB CITRATE
     Indication: RHEUMATOID ARTHRITIS
     Dosage: 5 MG, TWICE A DAY (FOR ABOUT 6 WEEKS)
     Dates: start: 201710, end: 201712
  2. IBUPROFEN. [Concomitant]
     Active Substance: IBUPROFEN
     Indication: RHEUMATOID ARTHRITIS
     Dosage: 600 MG, TWICE A DAY
     Route: 048
     Dates: start: 201709, end: 201712
  3. PREDNISOLONE. [Concomitant]
     Active Substance: PREDNISOLONE
     Indication: RHEUMATOID ARTHRITIS
     Dosage: 10 MG, UNKNOWN FREQUENCY
     Route: 048
     Dates: start: 201709, end: 201712

REACTIONS (10)
  - Toothache [Unknown]
  - Osteochondrosis [Unknown]
  - Headache [Unknown]
  - Pyrexia [Unknown]
  - Paraesthesia [Recovered/Resolved]
  - Dysaesthesia [Recovered/Resolved]
  - General physical condition decreased [Recovered/Resolved]
  - Pain [Recovered/Resolved]
  - Stomatitis [Recovered/Resolved]
  - Intervertebral disc disorder [Unknown]

NARRATIVE: CASE EVENT DATE: 201711
